FAERS Safety Report 24366074 (Version 2)
Quarter: 2024Q3

REPORT INFORMATION
  Report Type: Spontaneous
  Country: FR (occurrence: FR)
  Receive Date: 20240926
  Receipt Date: 20240927
  Transmission Date: 20241016
  Serious: Yes (Other)
  Sender: NOVARTIS
  Company Number: IT-002147023-NVSC2024FR190034

PATIENT
  Age: 53 Year
  Sex: Female

DRUGS (6)
  1. DABRAFENIB [Suspect]
     Active Substance: DABRAFENIB
     Indication: Craniopharyngioma
     Dosage: 150 MG, BID
     Route: 048
  2. DABRAFENIB [Suspect]
     Active Substance: DABRAFENIB
     Indication: BRAF V600E mutation positive
  3. DABRAFENIB [Suspect]
     Active Substance: DABRAFENIB
     Indication: Palliative care
  4. TRAMETINIB [Suspect]
     Active Substance: TRAMETINIB
     Indication: Craniopharyngioma
     Dosage: 1-2 MG, ONCE DAILY
     Route: 048
  5. TRAMETINIB [Suspect]
     Active Substance: TRAMETINIB
     Indication: BRAF V600E mutation positive
  6. TRAMETINIB [Suspect]
     Active Substance: TRAMETINIB
     Indication: Palliative care

REACTIONS (1)
  - Hepatic enzyme increased [Recovered/Resolved]
